FAERS Safety Report 7625248-4 (Version None)
Quarter: 2011Q3

REPORT INFORMATION
  Report Type: 
  Country: None (occurrence: None)
  Receive Date: 20110713
  Receipt Date: 20110628
  Transmission Date: 20111222
  Serious: Yes (Hospitalization, Other)
  Sender: FDA-Public Use
  Company Number: 2011MA007717

PATIENT
  Age: 73 Year
  Sex: Female

DRUGS (10)
  1. TIOTROPIUM BROMIDE [Concomitant]
  2. TORSEMIDE [Concomitant]
  3. DIGOXIN [Concomitant]
  4. ESCITALOPRAM [Concomitant]
  5. METFORMIN HYDROCHLORIDE [Suspect]
     Indication: DIABETES MELLITUS
     Dosage: 850 MG, TID
  6. BISOPROLOL FUMARATE [Concomitant]
  7. TERBUTALINE [Concomitant]
  8. INSULIN GLARGINE [Concomitant]
  9. ACENOCOUMAROL [Concomitant]
  10. LORMETAZEPAM [Concomitant]

REACTIONS (34)
  - ASTHENIA [None]
  - DEHYDRATION [None]
  - ANAEMIA [None]
  - INTERNATIONAL NORMALISED RATIO INCREASED [None]
  - ACTIVATED PARTIAL THROMBOPLASTIN TIME PROLONGED [None]
  - ASPARTATE AMINOTRANSFERASE INCREASED [None]
  - POLYDIPSIA [None]
  - LEUKOCYTOSIS [None]
  - BLOOD ALKALINE PHOSPHATASE INCREASED [None]
  - CARDIAC FAILURE [None]
  - PANCREATITIS [None]
  - GAMMA-GLUTAMYLTRANSFERASE INCREASED [None]
  - DECREASED APPETITE [None]
  - VOMITING [None]
  - ARRHYTHMIA [None]
  - HEPATOTOXICITY [None]
  - POLYURIA [None]
  - THROMBOCYTOPENIA [None]
  - HEART RATE DECREASED [None]
  - BLOOD GLUCOSE INCREASED [None]
  - BLOOD POTASSIUM INCREASED [None]
  - HAEMODIALYSIS [None]
  - DYSPNOEA [None]
  - ABDOMINAL PAIN UPPER [None]
  - BLOOD SODIUM DECREASED [None]
  - LACTIC ACIDOSIS [None]
  - PLEURAL EFFUSION [None]
  - ULTRASOUND ABDOMEN NORMAL [None]
  - GENERAL PHYSICAL HEALTH DETERIORATION [None]
  - ALANINE AMINOTRANSFERASE INCREASED [None]
  - BLOOD LACTATE DEHYDROGENASE INCREASED [None]
  - RENAL FAILURE [None]
  - NEUTROPHILIA [None]
  - BLOOD BILIRUBIN INCREASED [None]
